FAERS Safety Report 7319095-0 (Version None)
Quarter: 2011Q1

REPORT INFORMATION
  Report Type: 
  Country: None (occurrence: None)
  Receive Date: 20110228
  Receipt Date: 20110216
  Transmission Date: 20110831
  Serious: Yes (Hospitalization)
  Sender: FDA-Public Use
  Company Number: FR-PFIZER INC-FR-WYE-G01803408

PATIENT
  Age: 20 Year
  Sex: Female

DRUGS (5)
  1. VFEND [Suspect]
     Indication: ANTIFUNGAL PROPHYLAXIS
     Dosage: UNK
     Route: 042
     Dates: start: 20060721, end: 20060727
  2. TAZOCILLINE [Suspect]
     Indication: SEPSIS
     Dosage: 1 DF, 3X/DAY
     Route: 042
     Dates: start: 20060721, end: 20060729
  3. VANCOMYCIN [Concomitant]
     Dosage: UNK
     Route: 042
     Dates: start: 20070721, end: 20070729
  4. CYTARABINE [Concomitant]
     Dosage: UNK
     Route: 042
     Dates: start: 20060721, end: 20060727
  5. CERUBIDINE [Concomitant]
     Dosage: UNK
     Route: 042
     Dates: start: 20060721, end: 20060723

REACTIONS (3)
  - CYTOLYTIC HEPATITIS [None]
  - GAMMA-GLUTAMYLTRANSFERASE INCREASED [None]
  - BLOOD BILIRUBIN INCREASED [None]
